FAERS Safety Report 8827225 (Version 2)
Quarter: 2012Q4

REPORT INFORMATION
  Report Type: 
  Country: US (occurrence: US)
  Receive Date: 20121005
  Receipt Date: 20121122
  Transmission Date: 20130627
  Serious: Yes (Other)
  Sender: FDA-Public Use
  Company Number: US-ROCHE-784268

PATIENT
  Sex: Male
  Weight: 52.21 kg

DRUGS (9)
  1. ACCUTANE [Suspect]
     Indication: ACNE
     Route: 048
     Dates: start: 200410, end: 200411
  2. ACCUTANE [Suspect]
     Route: 048
  3. AMNESTEEM [Suspect]
     Indication: PRODUCT USED FOR UNKNOWN INDICATION
     Route: 048
     Dates: start: 200411, end: 200503
  4. WELLBUTRIN [Concomitant]
     Indication: DEPRESSION
  5. CANASA [Concomitant]
     Indication: COLITIS ULCERATIVE
  6. SEROQUEL [Concomitant]
     Indication: DEPRESSION
  7. BACTROBAN [Concomitant]
  8. ERYTHROMYCIN [Concomitant]
  9. TRETINOIN [Concomitant]

REACTIONS (6)
  - Colitis ulcerative [Unknown]
  - Inflammatory bowel disease [Unknown]
  - Stress [Unknown]
  - Depression [Unknown]
  - Suicidal ideation [Unknown]
  - Irritable bowel syndrome [Unknown]
